FAERS Safety Report 7768919-1 (Version None)
Quarter: 2011Q3

REPORT INFORMATION
  Report Type: 
  Country: None (occurrence: None)
  Receive Date: 20110922
  Receipt Date: 20110706
  Transmission Date: 20111222
  Serious: No
  Sender: FDA-Public Use
  Company Number: US-ASTRAZENECA-2011SE40288

PATIENT
  Age: 52 Year
  Sex: Female
  Weight: 90.7 kg

DRUGS (15)
  1. SEROQUEL [Suspect]
     Indication: SLEEP DISORDER
     Route: 048
     Dates: start: 20110618
  2. OLIVAMERE [Concomitant]
  3. XANAX [Concomitant]
  4. ESTRATEST [Concomitant]
  5. MORPHINE [Concomitant]
  6. SEROQUEL [Suspect]
     Indication: DEPRESSION
     Route: 048
     Dates: start: 20110618
  7. CRESTOR [Concomitant]
  8. METFORMIN [Concomitant]
  9. HUMALOG MIX 50/50 [Concomitant]
  10. SYNTHROID [Concomitant]
  11. SOMA [Concomitant]
  12. PERCOCET [Concomitant]
  13. NEURONTIN [Concomitant]
  14. ATENOLOL [Concomitant]
  15. ACTOS [Concomitant]

REACTIONS (1)
  - INITIAL INSOMNIA [None]
